FAERS Safety Report 19661172 (Version 1)
Quarter: 2021Q3

REPORT INFORMATION
  Report Type: Spontaneous
  Country: US (occurrence: US)
  Receive Date: 20210805
  Receipt Date: 20210805
  Transmission Date: 20211014
  Serious: Yes (Hospitalization)
  Sender: FDA-Public Use
  Company Number: None

PATIENT
  Age: 89 Year
  Sex: Male
  Weight: 70 kg

DRUGS (1)
  1. APIXABAN [Suspect]
     Active Substance: APIXABAN
     Indication: ATRIAL FIBRILLATION
     Route: 048
     Dates: start: 20210518, end: 20210630

REACTIONS (6)
  - Subdural haematoma [None]
  - Dyspnoea [None]
  - Facial paralysis [None]
  - Pneumonia [None]
  - Hydrocephalus [None]
  - Fall [None]

NARRATIVE: CASE EVENT DATE: 20210630
